FAERS Safety Report 7331838-9 (Version None)
Quarter: 2011Q1

REPORT INFORMATION
  Report Type: 
  Country: None (occurrence: None)
  Receive Date: 20110304
  Receipt Date: 20100625
  Transmission Date: 20110831
  Serious: Yes (Other)
  Sender: FDA-Public Use
  Company Number: US-PFIZER INC-2010034456

PATIENT
  Sex: Female

DRUGS (2)
  1. DILANTIN [Suspect]
     Dosage: 300 MG, AT BEDTIME
     Route: 048
     Dates: start: 20070226, end: 20070327
  2. DILANTIN [Suspect]
     Indication: CONVULSION
     Dosage: UNK
     Route: 042
     Dates: start: 20070223

REACTIONS (1)
  - STEVENS-JOHNSON SYNDROME [None]
